FAERS Safety Report 12535868 (Version 1)
Quarter: 2016Q3

REPORT INFORMATION
  Report Type: Spontaneous
  Country: GB (occurrence: GB)
  Receive Date: 20160707
  Receipt Date: 20160707
  Transmission Date: 20161109
  Serious: Yes (Death, Other)
  Sender: FDA-Public Use
  Company Number: GB-AUROBINDO-AUR-APL-2016-08423

PATIENT
  Sex: Male

DRUGS (2)
  1. FINASTERIDE 1MG [Suspect]
     Active Substance: FINASTERIDE
     Dosage: 1 MG, ONCE A DAY
     Dates: start: 201404, end: 201505
  2. FINASTERIDE 1MG [Suspect]
     Active Substance: FINASTERIDE
     Indication: ALOPECIA
     Dates: start: 2009, end: 2011

REACTIONS (2)
  - Completed suicide [Fatal]
  - Anxiety [Not Recovered/Not Resolved]

NARRATIVE: CASE EVENT DATE: 201508
